FAERS Safety Report 7569222-5 (Version None)
Quarter: 2011Q2

REPORT INFORMATION
  Report Type: 
  Country: None (occurrence: None)
  Receive Date: 20110623
  Receipt Date: 20110613
  Transmission Date: 20111010
  Serious: Yes (Hospitalization)
  Sender: FDA-Public Use
  Company Number: PHHY2011US52137

PATIENT
  Sex: Female

DRUGS (2)
  1. LOPRESSOR [Suspect]
     Indication: HYPERTENSION
     Dosage: 50 MG, TID
  2. LOPRESSOR [Suspect]
     Dosage: 100 MG, UNK

REACTIONS (2)
  - ATRIAL FIBRILLATION [None]
  - PRURITUS [None]
